FAERS Safety Report 5775125-9 (Version None)
Quarter: 2008Q2

REPORT INFORMATION
  Report Type: 
  Country: None (occurrence: None)
  Receive Date: 20080617
  Receipt Date: 20080606
  Transmission Date: 20081010
  Serious: Yes (Other)
  Sender: FDA-Public Use
  Company Number: US-NOVOPROD-276072

PATIENT
  Age: 5 Year
  Sex: Female

DRUGS (1)
  1. NORDITROPIN NORDIFLEX [Suspect]
     Indication: SMALL FOR DATES BABY
     Dosage: UNKNOWN
     Route: 058

REACTIONS (2)
  - ADENOIDAL HYPERTROPHY [None]
  - TONSILLAR HYPERTROPHY [None]
